FAERS Safety Report 5778286-0 (Version None)
Quarter: 2008Q2

REPORT INFORMATION
  Report Type: 
  Country: None (occurrence: None)
  Receive Date: 20080617
  Receipt Date: 20080605
  Transmission Date: 20081010
  Serious: Yes (Hospitalization)
  Sender: FDA-Public Use
  Company Number: 2008BI014580

PATIENT
  Age: 39 Year
  Sex: Female

DRUGS (1)
  1. AVONEX [Suspect]
     Indication: MULTIPLE SCLEROSIS
     Dosage: IM
     Route: 030
     Dates: start: 20030728, end: 20071101

REACTIONS (6)
  - ABDOMINAL INFECTION [None]
  - HAEMATOMA [None]
  - PRECANCEROUS CELLS PRESENT [None]
  - SCAR [None]
  - SMEAR CERVIX ABNORMAL [None]
  - VOMITING [None]
